FAERS Safety Report 4774697-0 (Version None)
Quarter: 2005Q3

REPORT INFORMATION
  Report Type: 
  Country: None (occurrence: None)
  Receive Date: 20050919
  Receipt Date: 20050822
  Transmission Date: 20060218
  Serious: Yes (Other)
  Sender: FDA-Public Use
  Company Number: 8011591

PATIENT
  Age: 12 Year
  Sex: Male

DRUGS (1)
  1. EQUASYM [Suspect]
     Indication: ATTENTION DEFICIT/HYPERACTIVITY DISORDER
     Dosage: 5 MG 3/D PO
     Route: 048
     Dates: start: 20050501, end: 20050630

REACTIONS (7)
  - AGGRESSION [None]
  - CONDITION AGGRAVATED [None]
  - DYSGRAPHIA [None]
  - EMOTIONAL DISORDER [None]
  - RESTLESSNESS [None]
  - SUICIDAL IDEATION [None]
  - TREMOR [None]
